FAERS Safety Report 13863518 (Version 2)
Quarter: 2018Q1

REPORT INFORMATION
  Report Type: Spontaneous
  Country: US (occurrence: US)
  Receive Date: 20170814
  Receipt Date: 20180110
  Transmission Date: 20180508
  Serious: No
  Sender: FDA-Public Use
  Company Number: US-PFIZER INC-2017349354

PATIENT
  Age: 70 Year
  Sex: Female
  Weight: 97 kg

DRUGS (15)
  1. GLUCOVANCE [Concomitant]
     Active Substance: GLYBURIDE\METFORMIN HYDROCHLORIDE
     Indication: DIABETES MELLITUS
     Dosage: 1 DF, 3X/DAY
     Route: 048
     Dates: start: 2003
  2. VITAMIN E [Concomitant]
     Active Substance: .ALPHA.-TOCOPHEROL
     Dosage: 400 IU, DAILY
  3. HYDROCHLOROTHIAZIDE AND LISINOPRIL [Concomitant]
     Active Substance: HYDROCHLOROTHIAZIDE\LISINOPRIL
     Indication: BLOOD PRESSURE ABNORMAL
     Dosage: 1 DF, DAILY
     Route: 048
     Dates: start: 2003
  4. COQ10 [Concomitant]
     Active Substance: UBIDECARENONE
     Dosage: UNK, DAILY
  5. CALCIUM [Concomitant]
     Active Substance: CALCIUM
     Dosage: 1500 MG, UNK
     Dates: start: 2014
  6. XGEVA [Concomitant]
     Active Substance: DENOSUMAB
     Indication: NEOPLASM MALIGNANT
     Dosage: 125 MG, MONTHLY (SHOT ONCE A MONTH)
     Dates: start: 20160629
  7. LOVASTATIN. [Concomitant]
     Active Substance: LOVASTATIN
     Dosage: 20 MG, UNK
     Dates: start: 2003
  8. VITAMIN B12 [Concomitant]
     Active Substance: CYANOCOBALAMIN
     Dosage: 750 MG, DAILY
  9. ASPIRIN. [Concomitant]
     Active Substance: ASPIRIN
     Dosage: 1.81 MG, DAILY
  10. IBRANCE [Suspect]
     Active Substance: PALBOCICLIB
     Indication: BREAST CANCER STAGE IV
     Dosage: 125 MG, CYCLIC (1 CAPSULE A DAY, 21 DAYS AND THEN OFF 7 DAYS)
     Route: 048
     Dates: start: 20160602
  11. FEMARA [Concomitant]
     Active Substance: LETROZOLE
     Indication: BONE DISORDER
     Dosage: 2.5 MG, DAILY
     Dates: start: 20160526
  12. VITAMIN C [Concomitant]
     Active Substance: ASCORBIC ACID
     Dosage: 1000 MG, DAILY
  13. PLAVIX [Concomitant]
     Active Substance: CLOPIDOGREL BISULFATE
     Dosage: 75 MG, UNK
     Dates: start: 201407
  14. VITAMIN A [Concomitant]
     Active Substance: VITAMIN A
     Dosage: 8000 IU, DAILY
  15. VITAMIN D3 [Concomitant]
     Active Substance: CHOLECALCIFEROL
     Dosage: 5000 IU, DAILY

REACTIONS (3)
  - Scoliosis [Recovered/Resolved]
  - Condition aggravated [Recovered/Resolved]
  - Swelling [Recovered/Resolved]

NARRATIVE: CASE EVENT DATE: 2017
